FAERS Safety Report 13980194 (Version 1)
Quarter: 2017Q3

REPORT INFORMATION
  Report Type: Spontaneous
  Country: DE (occurrence: DE)
  Receive Date: 20170917
  Receipt Date: 20170917
  Transmission Date: 20171128
  Serious: Yes (Death, Other)
  Sender: FDA-Public Use
  Company Number: PHHY2017DE134849

PATIENT
  Age: 47 Year
  Sex: Male

DRUGS (2)
  1. OCTREOTIDE. [Suspect]
     Active Substance: OCTREOTIDE
     Indication: NEUROENDOCRINE TUMOUR
     Dosage: UNK
     Route: 065
     Dates: start: 201404
  2. EVEROLIMUS [Suspect]
     Active Substance: EVEROLIMUS
     Indication: NEUROENDOCRINE TUMOUR
     Dosage: UNK
     Route: 065
     Dates: start: 201503, end: 201508

REACTIONS (16)
  - Metastases to lymph nodes [Unknown]
  - Urinary tract infection [Unknown]
  - Acute kidney injury [Unknown]
  - Mediastinal shift [Unknown]
  - Metastases to bone [Unknown]
  - Cachexia [Unknown]
  - Inferior vena caval occlusion [Unknown]
  - Death [Fatal]
  - Metastases to liver [Unknown]
  - Paraplegia [Unknown]
  - Malignant neoplasm progression [Unknown]
  - Hyperglycaemia [Unknown]
  - Pleural effusion [Unknown]
  - Pain [Unknown]
  - Spinal column stenosis [Unknown]
  - Hypoglycaemia [Unknown]

NARRATIVE: CASE EVENT DATE: 201408
